FAERS Safety Report 6228057-6 (Version None)
Quarter: 2009Q2

REPORT INFORMATION
  Report Type: 
  Country: None (occurrence: None)
  Receive Date: 20090612
  Receipt Date: 20090601
  Transmission Date: 20091009
  Serious: Yes (Hospitalization)
  Sender: FDA-Public Use
  Company Number: US-MERCK-0905USA03278

PATIENT
  Age: 73 Year
  Sex: Female
  Weight: 68 kg

DRUGS (6)
  1. LESCOL XL [Suspect]
     Indication: LOW DENSITY LIPOPROTEIN INCREASED
     Route: 048
     Dates: start: 20030106, end: 20030203
  2. LESCOL XL [Suspect]
     Indication: BLOOD TRIGLYCERIDES
     Route: 048
     Dates: start: 20030106, end: 20030203
  3. ZETIA [Concomitant]
     Indication: LOW DENSITY LIPOPROTEIN INCREASED
     Route: 048
     Dates: start: 20030908
  4. ZETIA [Concomitant]
     Indication: BLOOD TRIGLYCERIDES
     Route: 048
     Dates: start: 20030908
  5. HYDRODIURIL [Suspect]
     Indication: HYPERTENSION
     Route: 048
     Dates: start: 20010518
  6. VASOTEC [Concomitant]
     Indication: HYPERTENSION
     Route: 048
     Dates: start: 20020101

REACTIONS (2)
  - HEPATOTOXICITY [None]
  - LIVER INJURY [None]
